FAERS Safety Report 15627879 (Version 1)
Quarter: 2018Q4

REPORT INFORMATION
  Report Type: Report from Study
  Country: US (occurrence: US)
  Receive Date: 20181116
  Receipt Date: 20181116
  Transmission Date: 20190205
  Serious: Yes (Other)
  Sender: FDA-Public Use
  Company Number: US-MYLANLABS-2018M1067332

PATIENT
  Sex: Female
  Weight: 58 kg

DRUGS (2)
  1. SERTRALINE [Concomitant]
     Active Substance: SERTRALINE HYDROCHLORIDE
     Indication: PRODUCT USED FOR UNKNOWN INDICATION
     Dosage: 125 MG, UNK (100 MG AND ONE 25 MG TABLET DUE TO INSURANCE)
  2. GLATIRAMER ACETATE INJECTION [Suspect]
     Active Substance: GLATIRAMER ACETATE
     Indication: RELAPSING-REMITTING MULTIPLE SCLEROSIS
     Dosage: 40 MG, 3XW
     Route: 058
     Dates: end: 20180912

REACTIONS (9)
  - Lower respiratory tract infection [Unknown]
  - Nausea [Unknown]
  - Tongue erythema [Unknown]
  - Injection site pain [Unknown]
  - Underdose [Unknown]
  - Injection site erythema [Recovered/Resolved]
  - Dizziness [Unknown]
  - Injection site discomfort [Unknown]
  - Hangover [Unknown]
